FAERS Safety Report 9624879 (Version 2)
Quarter: 2013Q4

REPORT INFORMATION
  Report Type: Report from Study
  Country: CH (occurrence: CH)
  Receive Date: 20131016
  Receipt Date: 20131106
  Transmission Date: 20140711
  Serious: Yes (Death, Hospitalization)
  Sender: FDA-Public Use
  Company Number: CH-ROCHE-1289260

PATIENT
  Age: 85 Year
  Sex: Male

DRUGS (4)
  1. ALTEPLASE [Suspect]
     Indication: PULMONARY EMBOLISM
     Dosage: 10 MG AS BOLUS
     Route: 042
  2. ALTEPLASE [Suspect]
     Dosage: 90 MG AS PERFUSION OVER 2H
     Route: 042
  3. UNFRACTIONATED HEPARIN [Suspect]
     Indication: PULMONARY EMBOLISM
     Route: 042
  4. UNFRACTIONATED HEPARIN [Suspect]
     Dosage: BOLUSES TO OBTAIN AN ACTIVATED CLOTTING TIME OF CA. 300 SEC (NR)
     Route: 042

REACTIONS (6)
  - Multi-organ failure [Fatal]
  - Hypoxia [Fatal]
  - Cardiac arrest [Fatal]
  - Acidosis [Fatal]
  - Haemodynamic instability [Fatal]
  - Drug ineffective [Fatal]
